FAERS Safety Report 7111643-9 (Version None)
Quarter: 2010Q4

REPORT INFORMATION
  Report Type: 
  Country: None (occurrence: None)
  Receive Date: 20101118
  Receipt Date: 20101108
  Transmission Date: 20110411
  Serious: Yes (Hospitalization, Other)
  Sender: FDA-Public Use
  Company Number: PHEH2009US09838

PATIENT
  Sex: Female

DRUGS (29)
  1. ZOMETA [Suspect]
     Indication: METASTASES TO BONE
  2. ARIMIDEX [Concomitant]
     Dosage: UNK
  3. XELODA [Concomitant]
  4. TAXOL [Concomitant]
  5. TAXOTERE [Concomitant]
  6. GEMCITABINE [Concomitant]
  7. NEUPOGEN [Concomitant]
  8. CARBOPLATIN [Concomitant]
  9. LOVENOX [Concomitant]
  10. LEUKINE [Concomitant]
  11. MAGNESIUM OXIDE [Concomitant]
  12. NEXIUM [Concomitant]
  13. ATIVAN [Concomitant]
  14. LAXATIVES [Concomitant]
  15. LORTAB [Concomitant]
  16. PHENERGAN ^AVENTIS PHARMA^ [Concomitant]
  17. TEMAZEPAM [Concomitant]
  18. IMODIUM [Concomitant]
  19. OXYGEN [Concomitant]
  20. ZYRTEC [Concomitant]
  21. EFFEXOR [Concomitant]
  22. ALBUTEROL [Concomitant]
  23. LOPRESSOR [Concomitant]
  24. PREDNISONE [Concomitant]
  25. LEVAQUIN [Concomitant]
  26. TAMOXIFEN CITRATE [Concomitant]
  27. FASLODEX [Concomitant]
  28. AROMASIN [Concomitant]
  29. CYTOXAN [Concomitant]

REACTIONS (60)
  - ADENOCARCINOMA [None]
  - ADNEXA UTERI CYST [None]
  - ADRENAL CARCINOMA [None]
  - ANAEMIA [None]
  - ANHEDONIA [None]
  - ANXIETY [None]
  - ASPIRATION PLEURAL CAVITY [None]
  - ATELECTASIS [None]
  - ATROPHIC VULVOVAGINITIS [None]
  - BREATH SOUNDS ABNORMAL [None]
  - BRONCHITIS [None]
  - CHRONIC SINUSITIS [None]
  - DEEP VEIN THROMBOSIS [None]
  - DEHYDRATION [None]
  - DENTAL OPERATION [None]
  - DEPRESSION [None]
  - DIABETES MELLITUS [None]
  - DYSPHAGIA [None]
  - DYSPNOEA [None]
  - ETHMOID SINUS SURGERY [None]
  - GASTRITIS [None]
  - GASTROOESOPHAGEAL REFLUX DISEASE [None]
  - GENERAL PHYSICAL HEALTH DETERIORATION [None]
  - HEPATIC STEATOSIS [None]
  - HIATUS HERNIA [None]
  - HYPOTENSION [None]
  - HYPOVOLAEMIA [None]
  - INSOMNIA [None]
  - LUNG CONSOLIDATION [None]
  - LUNG INFILTRATION [None]
  - LUNG WEDGE RESECTION [None]
  - LYMPHOEDEMA [None]
  - MEDICAL DEVICE REMOVAL [None]
  - MENTAL STATUS CHANGES [None]
  - METASTASES TO ABDOMINAL CAVITY [None]
  - METASTASES TO BONE [None]
  - METASTASES TO LIVER [None]
  - METASTASES TO NECK [None]
  - METASTASES TO PLEURA [None]
  - NEOPLASM MALIGNANT [None]
  - NEUTROPENIA [None]
  - OBSTRUCTIVE AIRWAYS DISORDER [None]
  - OSTEONECROSIS OF JAW [None]
  - PAIN [None]
  - PERIODONTITIS [None]
  - PLEURAL EFFUSION [None]
  - PLEURAL FIBROSIS [None]
  - PLEURODESIS [None]
  - PNEUMONECTOMY [None]
  - PNEUMONIA [None]
  - PNEUMOTHORAX [None]
  - RESPIRATORY FAILURE [None]
  - SCOLIOSIS [None]
  - SEPSIS [None]
  - SINUS ANTROSTOMY [None]
  - SPHINGOMONAS PAUCIMOBILIS INFECTION [None]
  - TACHYCARDIA [None]
  - TUMOUR MARKER INCREASED [None]
  - VAGINAL INFECTION [None]
  - VULVOVAGINAL PRURITUS [None]
